FAERS Safety Report 5597009-1 (Version None)
Quarter: 2007Q4

REPORT INFORMATION
  Report Type: 
  Country: None (occurrence: None)
  Receive Date: 20071220
  Receipt Date: 20070611
  Transmission Date: 20080405
  Serious: Yes (Other)
  Sender: FDA-Public Use
  Company Number: PHEH2007US08737

PATIENT
  Age: 32 Year
  Sex: Female

DRUGS (3)
  1. PARLODEL [Suspect]
     Indication: BLOOD PROLACTIN INCREASED
     Dosage: ORAL
     Route: 048
     Dates: end: 20070515
  2. PRENATAL VITAMINS (ASCORBIC ACID, BIOTIN, MINERALS NOS, NICOTINIC ACID [Concomitant]
  3. FOLIC ACID [Concomitant]

REACTIONS (2)
  - CONVULSION [None]
  - DRUG EXPOSURE DURING PREGNANCY [None]
